FAERS Safety Report 17157471 (Version 1)
Quarter: 2019Q4

REPORT INFORMATION
  Report Type: Spontaneous
  Country: US (occurrence: US)
  Receive Date: 20191121
  Receipt Date: 20191121
  Transmission Date: 20200122
  Serious: Yes (Hospitalization)
  Sender: FDA-Public Use
  Company Number: None

PATIENT
  Age: 46 Year
  Sex: Female

DRUGS (1)
  1. AVONEX [Suspect]
     Active Substance: INTERFERON BETA-1A
     Indication: MULTIPLE SCLEROSIS
     Dosage: ?          OTHER STRENGTH:300MCG/0.5M;OTHER DOSE:30MCG;?
     Route: 030
     Dates: start: 1997

REACTIONS (3)
  - Seizure [None]
  - Body temperature increased [None]
  - Dehydration [None]

NARRATIVE: CASE EVENT DATE: 20191105
